FAERS Safety Report 14100026 (Version 1)
Quarter: 2017Q4

REPORT INFORMATION
  Report Type: Spontaneous
  Country: FR (occurrence: FR)
  Receive Date: 20171017
  Receipt Date: 20171017
  Transmission Date: 20180321
  Serious: Yes (Hospitalization)
  Sender: FDA-Public Use
  Company Number: FR-SA-2017SA196090

PATIENT
  Age: 93 Year
  Sex: Male

DRUGS (7)
  1. FUMAFER [Concomitant]
     Active Substance: FERROUS FUMARATE
     Dosage: STRENGTH: 66 MG
     Route: 065
  2. XARELTO [Concomitant]
     Active Substance: RIVAROXABAN
     Dosage: STRENGTH:15 MG
     Route: 065
  3. PANTOPRAZOLE [Concomitant]
     Active Substance: PANTOPRAZOLE
  4. LEVOTHYROX [Concomitant]
     Active Substance: LEVOTHYROXINE
     Dosage: 75 MICROGRAM, DIVISIBLE TABLET
     Route: 065
  5. LANTUS [Suspect]
     Active Substance: INSULIN GLARGINE
     Indication: DIABETES MELLITUS
     Dosage: DOSAGE/UNIT/FREQUENCY/AMOUNT:6 DF, 1 DAY (S)
     Route: 058
     Dates: end: 20170912
  6. PERMIXON [Concomitant]
     Active Substance: HERBALS\SAW PALMETTO
     Dosage: STRENGTH: 160 MG
     Route: 065
  7. CREON [Concomitant]
     Active Substance: PANCRELIPASE AMYLASE\PANCRELIPASE LIPASE\PANCRELIPASE PROTEASE
     Dosage: 25 000 U, GASTRO-RESISTANT GRANULES IN CAPSULES
     Route: 065

REACTIONS (2)
  - Hypoglycaemia [Recovered/Resolved]
  - General physical health deterioration [Recovering/Resolving]

NARRATIVE: CASE EVENT DATE: 201709
